FAERS Safety Report 5044385-4 (Version None)
Quarter: 2006Q3

REPORT INFORMATION
  Report Type: 
  Country: None (occurrence: None)
  Receive Date: 20060706
  Receipt Date: 20060626
  Transmission Date: 20061208
  Serious: Yes (Other)
  Sender: FDA-Public Use
  Company Number: GR-JNJFOC-20060605586

PATIENT
  Age: 35 Year
  Sex: Male

DRUGS (5)
  1. REMICADE [Suspect]
     Dosage: WEEK 2
  2. REMICADE [Suspect]
     Indication: CROHN'S DISEASE
     Dosage: WEEK 0
  3. METHOTREXATE [Concomitant]
     Indication: CROHN'S DISEASE
  4. MESALAZINE [Concomitant]
     Indication: CROHN'S DISEASE
  5. METHYLPREDNISONE [Concomitant]
     Indication: CROHN'S DISEASE

REACTIONS (2)
  - EPSTEIN-BARR VIRUS TEST POSITIVE [None]
  - HODGKIN'S DISEASE [None]
